FAERS Safety Report 8782101 (Version 1)
Quarter: 2012Q4

REPORT INFORMATION
  Report Type: Report from Study
  Country: JP (occurrence: JP)
  Receive Date: 20120913
  Receipt Date: 20120913
  Transmission Date: 20130627
  Serious: Yes (Life-Threatening)
  Sender: FDA-Public Use
  Company Number: JP-ACTELION-A-CH2011-44911

PATIENT
  Age: 62 Year
  Sex: Female
  Weight: 53 kg

DRUGS (6)
  1. TRACLEER [Suspect]
     Indication: PULMONARY ARTERIAL HYPERTENSION
     Dosage: 125 mg, bid
     Route: 048
     Dates: start: 20100407
  2. TRACLEER [Suspect]
     Dosage: 62.5 mg, bid
     Route: 048
     Dates: start: 20100310, end: 20100406
  3. BERAPROST SODIUM [Concomitant]
  4. DIPYRIDAMOLE [Concomitant]
  5. URSODEOXYCHOLIC ACID [Concomitant]
  6. OXYGEN [Concomitant]

REACTIONS (5)
  - Gastrointestinal haemorrhage [Recovered/Resolved]
  - Anaemia [Recovered/Resolved]
  - Dyspnoea [Recovered/Resolved]
  - Liver function test abnormal [Recovered/Resolved]
  - Platelet count decreased [Recovered/Resolved]
